FAERS Safety Report 26129890 (Version 1)
Quarter: 2025Q4

REPORT INFORMATION
  Report Type: Other
  Country: EU (occurrence: EU)
  Receive Date: 20251208
  Receipt Date: 20251208
  Transmission Date: 20260118
  Serious: Yes (Hospitalization)
  Sender: ZYDUS PHARM
  Company Number: None

PATIENT

DRUGS (3)
  1. BISOPROLOL [Suspect]
     Active Substance: BISOPROLOL
     Indication: Ischaemic heart disease prophylaxis
     Dosage: 2.5 MILLIGRAM, QD
     Route: 048
     Dates: start: 20140222, end: 20251028
  2. RAMIPRIL [Suspect]
     Active Substance: RAMIPRIL
     Indication: Hypertension
     Dosage: 2.5 MILLIGRAM, QD
     Route: 048
     Dates: start: 20220101, end: 20251028
  3. FUROSEMIDE [Suspect]
     Active Substance: FUROSEMIDE
     Indication: Product used for unknown indication
     Dosage: 40 MILLIGRAM, QD
     Route: 048
     Dates: start: 20220101, end: 20251028

REACTIONS (2)
  - Acute kidney injury [Recovering/Resolving]
  - Bradycardia [Recovered/Resolved]

NARRATIVE: CASE EVENT DATE: 20251028
